FAERS Safety Report 6357105-8 (Version None)
Quarter: 2009Q3

REPORT INFORMATION
  Report Type: 
  Country: None (occurrence: None)
  Receive Date: 20090910
  Receipt Date: 20090817
  Transmission Date: 20100115
  Serious: Yes (Other)
  Sender: FDA-Public Use
  Company Number: 2009002322

PATIENT
  Age: 63 Year
  Sex: Female

DRUGS (2)
  1. TARCEVA [Suspect]
     Indication: LUNG NEOPLASM MALIGNANT
     Dosage: 150 MG, QD, ORAL
     Route: 048
  2. PREDNISONE TAB [Concomitant]

REACTIONS (4)
  - IMMOBILE [None]
  - IMPAIRED HEALING [None]
  - PULMONARY CONGESTION [None]
  - PULMONARY THROMBOSIS [None]
